FAERS Safety Report 9751692 (Version 3)
Quarter: 2014Q1

REPORT INFORMATION
  Report Type: Report from Study
  Country: US (occurrence: US)
  Receive Date: 20131213
  Receipt Date: 20140130
  Transmission Date: 20141002
  Serious: Yes (Other)
  Sender: FDA-Public Use
  Company Number: US-ROCHE-1313726

PATIENT
  Sex: Male

DRUGS (5)
  1. KLONOPIN [Suspect]
     Indication: CONVULSION
     Route: 048
  2. RITUXAN [Suspect]
     Indication: RHEUMATOID ARTHRITIS
     Route: 042
  3. BACLOFEN [Concomitant]
     Route: 048
  4. ZIAC (UNITED STATES) [Concomitant]
     Indication: HYPERTENSION
     Route: 048
  5. TEGRETOL [Concomitant]
     Route: 048

REACTIONS (6)
  - Convulsion [Not Recovered/Not Resolved]
  - Muscle spasms [Not Recovered/Not Resolved]
  - Gait disturbance [Not Recovered/Not Resolved]
  - Fall [Unknown]
  - Drug effect decreased [Unknown]
  - Stiff person syndrome [Unknown]
